FAERS Safety Report 4547992-8 (Version None)
Quarter: 2004Q4

REPORT INFORMATION
  Report Type: 
  Country: None (occurrence: None)
  Receive Date: 20041227
  Receipt Date: 20040921
  Transmission Date: 20050328
  Serious: No
  Sender: FDA-Public Use
  Company Number: 04P-163-0273933-00

PATIENT
  Age: 74 Year
  Sex: Female
  Weight: 62.1428 kg

DRUGS (10)
  1. HUMIRA [Suspect]
     Indication: RHEUMATOID ARTHRITIS
     Dosage: 40 MG, 1 IN 2 WK, SUBCUTANEOUS
     Route: 058
     Dates: start: 20040120, end: 20040401
  2. HUMIRA [Suspect]
     Indication: RHEUMATOID ARTHRITIS
     Dosage: 40 MG, 1 IN 2 WK, SUBCUTANEOUS
     Route: 058
     Dates: start: 20040401
  3. ROFECOXIB [Concomitant]
  4. FOLGARD [Concomitant]
  5. CETIRIZINE HCL [Concomitant]
  6. CARBAMAZEPINE [Concomitant]
  7. SPIRIVA [Concomitant]
  8. SERETIDE MITE [Concomitant]
  9. NEBULIZER [Concomitant]
  10. PROPACET 100 [Concomitant]

REACTIONS (1)
  - PERIPHERAL COLDNESS [None]
